FAERS Safety Report 25371600 (Version 2)
Quarter: 2025Q2

REPORT INFORMATION
  Report Type: Spontaneous
  Country: IT (occurrence: IT)
  Receive Date: 20250529
  Receipt Date: 20250603
  Transmission Date: 20250717
  Serious: Yes (Hospitalization)
  Sender: GENMAB
  Company Number: None

PATIENT
  Age: 53 Year
  Sex: Male

DRUGS (3)
  1. EPCORITAMAB [Suspect]
     Active Substance: EPCORITAMAB
     Indication: Diffuse large B-cell lymphoma
     Dosage: 48 MILLIGRAM 1Q2W (EVERY 14 DAY)
     Route: 058
     Dates: start: 20241202, end: 20250402
  2. CYTARABINE [Suspect]
     Active Substance: CYTARABINE
     Indication: Diffuse large B-cell lymphoma
     Dosage: 3600 MILLIGRAM, QD (INDUCTION CYCLE 3600 MG ON 8/04 AND 3600 MG ON 9/04, EVERY 24 HOURS)
     Route: 042
     Dates: start: 20250408, end: 20250409
  3. OXALIPLATIN [Suspect]
     Active Substance: OXALIPLATIN
     Indication: Diffuse large B-cell lymphoma
     Dosage: 234 MILLIGRAM, QD (INDICATION NOT PRESENT IN CPR)
     Route: 042
     Dates: start: 20250407, end: 20250407

REACTIONS (5)
  - Asthenia [Recovering/Resolving]
  - Paraesthesia [Recovering/Resolving]
  - Vomiting [Recovering/Resolving]
  - Nausea [Recovering/Resolving]
  - Off label use [Recovering/Resolving]

NARRATIVE: CASE EVENT DATE: 20250417
